FAERS Safety Report 14837158 (Version 1)
Quarter: 2018Q2

REPORT INFORMATION
  Report Type: Spontaneous
  Country: US (occurrence: US)
  Receive Date: 20180418
  Receipt Date: 20180418
  Transmission Date: 20180711
  Serious: Yes (Hospitalization)
  Sender: FDA-Public Use
  Company Number: None

PATIENT
  Age: 34 Year
  Sex: Female

DRUGS (17)
  1. DULERA [Suspect]
     Active Substance: FORMOTEROL FUMARATE DIHYDRATE\MOMETASONE FUROATE
     Indication: BRONCHIECTASIS
     Dosage: 400MCG/10MCG, BID, ORAL, INHALED
     Route: 048
     Dates: start: 20180105
  2. MORPHINE SULFATE. [Concomitant]
     Active Substance: MORPHINE SULFATE
  3. FERROUS SULFATE. [Concomitant]
     Active Substance: FERROUS SULFATE
  4. CELECOXIB. [Concomitant]
     Active Substance: CELECOXIB
  5. PREDNISONE. [Concomitant]
     Active Substance: PREDNISONE
  6. AMTITRIPTYLINE [Concomitant]
  7. PARTOPRAZOLE [Concomitant]
  8. CLONIDINE. [Concomitant]
     Active Substance: CLONIDINE
  9. CIPROFLOXACIN. [Concomitant]
     Active Substance: CIPROFLOXACIN
  10. MONTELUKAST [Concomitant]
     Active Substance: MONTELUKAST SODIUM
  11. LOVALBUTEROL [Concomitant]
  12. LYRICA [Concomitant]
     Active Substance: PREGABALIN
  13. PERFOROMIST [Concomitant]
     Active Substance: FORMOTEROL FUMARATE DIHYDRATE
  14. BUDESNIDE [Concomitant]
  15. BACLOFEN. [Concomitant]
     Active Substance: BACLOFEN
  16. MUCINEX DM [Concomitant]
     Active Substance: DEXTROMETHORPHAN HYDROBROMIDE\GUAIFENESIN
  17. XARELTO [Concomitant]
     Active Substance: RIVAROXABAN

REACTIONS (1)
  - Hospitalisation [None]

NARRATIVE: CASE EVENT DATE: 201803
